FAERS Safety Report 7311676-3 (Version None)
Quarter: 2011Q1

REPORT INFORMATION
  Report Type: 
  Country: None (occurrence: None)
  Receive Date: 20110215
  Receipt Date: 20110215
  Transmission Date: 20110831
  Serious: Yes (Other)
  Sender: FDA-Public Use
  Company Number: None

PATIENT
  Age: 97 Year
  Sex: Male
  Weight: 74.8435 kg

DRUGS (1)
  1. CIPROFLOXACIN [Suspect]
     Indication: ESCHERICHIA INFECTION
     Dosage: 500 MG. 2 X DAY 10 DAYS
     Dates: start: 20101120, end: 20101130

REACTIONS (3)
  - DEMENTIA [None]
  - RASH [None]
  - DIARRHOEA [None]
